FAERS Safety Report 16648391 (Version 6)
Quarter: 2021Q2

REPORT INFORMATION
  Report Type: Report from Study
  Country: US (occurrence: US)
  Receive Date: 20190730
  Receipt Date: 20210621
  Transmission Date: 20210716
  Serious: Yes (Hospitalization, Other)
  Sender: FDA-Public Use
  Company Number: PHEH2019US031305

PATIENT
  Age: 23 Year
  Sex: Female
  Weight: 56.69 kg

DRUGS (5)
  1. AFINITOR DISPERZ [Suspect]
     Active Substance: EVEROLIMUS
     Indication: PARTIAL SEIZURES
     Dosage: 8 MG, QD
     Route: 048
     Dates: start: 20190717
  2. AFINITOR DISPERZ [Suspect]
     Active Substance: EVEROLIMUS
     Dosage: 9 MG, QD
     Route: 048
     Dates: start: 20190716, end: 20210608
  3. LAMICTAL [Concomitant]
     Active Substance: LAMOTRIGINE
     Indication: PRODUCT USED FOR UNKNOWN INDICATION
     Dosage: UNK
     Route: 065
  4. ZONISAMIDE. [Concomitant]
     Active Substance: ZONISAMIDE
     Indication: PRODUCT USED FOR UNKNOWN INDICATION
     Dosage: UNK
     Route: 065
  5. DILANTIN [Concomitant]
     Active Substance: PHENYTOIN
     Indication: PRODUCT USED FOR UNKNOWN INDICATION
     Dosage: UNK
     Route: 065

REACTIONS (9)
  - SARS-CoV-2 test positive [Unknown]
  - Bacterial vaginosis [Unknown]
  - Insomnia [Unknown]
  - Seizure [Unknown]
  - Stomatitis [Unknown]
  - Neoplasm progression [Not Recovered/Not Resolved]
  - Vaginal haemorrhage [Unknown]
  - Tuberous sclerosis complex [Not Recovered/Not Resolved]
  - Pyrexia [Unknown]

NARRATIVE: CASE EVENT DATE: 20210504
